FAERS Safety Report 20623897 (Version 2)
Quarter: 2022Q1

REPORT INFORMATION
  Report Type: Spontaneous
  Country: US (occurrence: US)
  Receive Date: 20220322
  Receipt Date: 20220329
  Transmission Date: 20220423
  Serious: Yes (Hospitalization)
  Sender: FDA-Public Use
  Company Number: US-LUPIN PHARMACEUTICALS INC.-2022-03883

PATIENT
  Age: 40 Year
  Sex: Female
  Weight: 170 kg

DRUGS (5)
  1. VANCOMYCIN [Suspect]
     Active Substance: VANCOMYCIN
     Indication: Staphylococcal bacteraemia
     Dosage: 1250 MG, TID (EVERY 8 HOURS)
     Route: 065
  2. DALBAVANCIN [Concomitant]
     Active Substance: DALBAVANCIN
     Indication: Staphylococcal bacteraemia
     Dosage: 1500 MG (FIRST DOSE ON HOSPITAL DAY 18)
     Route: 042
  3. DALBAVANCIN [Concomitant]
     Active Substance: DALBAVANCIN
     Indication: Prophylaxis
     Dosage: 1000 MG (SECOND DOSE, TWO WEEKS LATER OF FIRST DOSE)
     Route: 042
  4. DAPTOMYCIN [Concomitant]
     Active Substance: DAPTOMYCIN
     Indication: Staphylococcal bacteraemia
     Dosage: 750 MG, QD
     Route: 042
  5. CEFTAROLINE [Concomitant]
     Active Substance: CEFTAROLINE
     Indication: Staphylococcal bacteraemia
     Dosage: 600 MG, TID
     Route: 042

REACTIONS (1)
  - Drug ineffective [Unknown]
